FAERS Safety Report 21986896 (Version 1)
Quarter: 2023Q1

REPORT INFORMATION
  Report Type: Spontaneous
  Country: GB (occurrence: GB)
  Receive Date: 20230213
  Receipt Date: 20230213
  Transmission Date: 20230417
  Serious: Yes (Other)
  Sender: FDA-Public Use
  Company Number: None

PATIENT
  Age: 83 Year
  Sex: Female
  Weight: 70 kg

DRUGS (1)
  1. EDOXABAN [Suspect]
     Active Substance: EDOXABAN
     Indication: Atrial fibrillation
     Dosage: 60 UNK
     Route: 065
     Dates: start: 20221215, end: 20221223

REACTIONS (2)
  - Jaundice [Recovered/Resolved]
  - Liver function test abnormal [Recovered/Resolved]

NARRATIVE: CASE EVENT DATE: 20221222
